FAERS Safety Report 25396894 (Version 3)
Quarter: 2025Q3

REPORT INFORMATION
  Report Type: Report from Study
  Country: US (occurrence: US)
  Receive Date: 20250604
  Receipt Date: 20250929
  Transmission Date: 20251020
  Serious: Yes (Other)
  Sender: UCB
  Company Number: US-UCBSA-2025000169

PATIENT
  Age: 16 Year
  Sex: Female
  Weight: 47.3 kg

DRUGS (3)
  1. FINTEPLA [Suspect]
     Active Substance: FENFLURAMINE
     Indication: Severe myoclonic epilepsy of infancy
     Dosage: 4 MILLILITER, 3X/DAY (TID)
     Dates: start: 20210603
  2. FINTEPLA [Suspect]
     Active Substance: FENFLURAMINE
     Dosage: 4 MILLILITER, 3X/DAY (TID)
  3. FINTEPLA [Suspect]
     Active Substance: FENFLURAMINE
     Dosage: 4 MILLILITER, 3X/DAY (TID)

REACTIONS (4)
  - Seizure cluster [Not Recovered/Not Resolved]
  - Pulmonary valve incompetence [Unknown]
  - Gastroenteritis viral [Recovered/Resolved]
  - Inappropriate schedule of product administration [Unknown]

NARRATIVE: CASE EVENT DATE: 20210603
